FAERS Safety Report 5092911-1 (Version None)
Quarter: 2006Q3

REPORT INFORMATION
  Report Type: 
  Country: None (occurrence: None)
  Receive Date: 20060727
  Receipt Date: 20060510
  Transmission Date: 20061208
  Serious: Yes (Other)
  Sender: FDA-Public Use
  Company Number: 2006035800

PATIENT
  Age: 70 Year
  Sex: Female
  Weight: 87.0906 kg

DRUGS (21)
  1. LYRICA [Suspect]
     Indication: DIABETIC NEUROPATHY
     Dosage: 100 MG (50 MG,2 IN 1 D)
     Dates: start: 20060228
  2. LIPITOR [Concomitant]
  3. EVISTA [Concomitant]
  4. GLUCOPHAGE [Concomitant]
  5. CELEBREX [Concomitant]
  6. PAXIL [Concomitant]
  7. PREVACID [Concomitant]
  8. HYZAAR [Concomitant]
  9. AMITRIPTYLINE HCL [Concomitant]
  10. MAXZIDE [Concomitant]
  11. AMBIEN [Concomitant]
  12. TARKA [Concomitant]
  13. METOPROLOL (METOPROLOL) [Concomitant]
  14. TRAMADOL HCL [Concomitant]
  15. SYNTHROID [Concomitant]
  16. LASIX [Concomitant]
  17. SPIRONOLACTONE [Concomitant]
  18. WARFARIN SODIUM [Concomitant]
  19. FIORICET [Concomitant]
  20. LIDOCAINE [Concomitant]
  21. ALL OTHER THERAPEUTIC PRODUCTS (ALL OTHER THERAPEUTIC PRODUCTS) [Concomitant]

REACTIONS (1)
  - FLUID RETENTION [None]
